FAERS Safety Report 9278721 (Version 1)
Quarter: 2013Q2

REPORT INFORMATION
  Report Type: Report from Study
  Country: CA (occurrence: CA)
  Receive Date: 20130508
  Receipt Date: 20130508
  Transmission Date: 20140414
  Serious: Yes (Hospitalization, Other)
  Sender: FDA-Public Use
  Company Number: CA-ABBOTT-13P-028-1084268-00

PATIENT
  Age: 61 Year
  Sex: Male
  Weight: 84.9 kg

DRUGS (5)
  1. HUMIRA [Suspect]
     Indication: SERONEGATIVE ARTHRITIS
     Route: 058
     Dates: start: 2011, end: 201303
  2. HUMIRA [Suspect]
     Route: 058
     Dates: start: 20130429
  3. MAVIK [Concomitant]
     Indication: HYPERTENSION
     Route: 048
  4. NEXIUM [Concomitant]
     Indication: GASTROOESOPHAGEAL REFLUX DISEASE
     Route: 048
  5. HYDROCHLOROTHIAZIDE [Concomitant]
     Indication: HYPERTENSION
     Route: 048

REACTIONS (9)
  - Intestinal stenosis [Unknown]
  - Crohn^s disease [Unknown]
  - Crohn^s disease [Unknown]
  - Procedural pain [Not Recovered/Not Resolved]
  - Insomnia [Not Recovered/Not Resolved]
  - Blood folate decreased [Recovering/Resolving]
  - Blood test abnormal [Recovering/Resolving]
  - Weight decreased [Not Recovered/Not Resolved]
  - Intestinal stenosis [Unknown]
